FAERS Safety Report 10034430 (Version 1)
Quarter: 2014Q1

REPORT INFORMATION
  Report Type: Spontaneous
  Country: US (occurrence: None)
  Receive Date: 20140324
  Receipt Date: 20140324
  Transmission Date: 20141002
  Serious: Yes (Other)
  Sender: FDA-Public Use
  Company Number: None

PATIENT
  Age: 47 Year
  Sex: Female
  Weight: 56.7 kg

DRUGS (1)
  1. ROZEREM [Suspect]
     Indication: INSOMNIA
     Dosage: 1, AT BEDTIME, TAKEN BY MOUTH
     Route: 048
     Dates: start: 20140319, end: 20140320

REACTIONS (4)
  - Insomnia [None]
  - Hypervigilance [None]
  - Pruritus [None]
  - Muscle twitching [None]
